FAERS Safety Report 9892011 (Version 1)
Quarter: 2014Q1

REPORT INFORMATION
  Report Type: Spontaneous
  Country: US (occurrence: None)
  Receive Date: 20140210
  Receipt Date: 20140210
  Transmission Date: 20141002
  Serious: Yes (Hospitalization)
  Sender: FDA-Public Use
  Company Number: SYM-2014-16397

PATIENT
  Age: 23 Year
  Sex: Female

DRUGS (3)
  1. METRONIDAZOLE (METRONIDAZOLE) (METRONIDAZOLE) [Suspect]
     Indication: PELVIC INFLAMMATORY DISEASE
  2. CEFTRIAXONE (CEFTRIAXONE) (CEFTRIAXONE) [Concomitant]
  3. DOXYCYCLINE (DOXYCYCLINE) (DOXYCYCLINE) [Concomitant]

REACTIONS (2)
  - Porphyria acute [None]
  - Blood pressure increased [None]
